FAERS Safety Report 10077477 (Version 3)
Quarter: 2014Q2

REPORT INFORMATION
  Report Type: Spontaneous
  Country: PL (occurrence: PL)
  Receive Date: 20140414
  Receipt Date: 20140509
  Transmission Date: 20141212
  Serious: Yes (Hospitalization)
  Sender: FDA-Public Use
  Company Number: PL-PFIZER INC-2014098886

PATIENT
  Age: 22 Year
  Sex: Male
  Weight: 68 kg

DRUGS (1)
  1. DALACIN C [Suspect]
     Indication: ACUTE TONSILLITIS
     Dosage: 900 MG, UNK
     Route: 048
     Dates: start: 20131028, end: 20131104

REACTIONS (4)
  - Joint swelling [Unknown]
  - Pain in extremity [Unknown]
  - Rash maculo-papular [Unknown]
  - Rash erythematous [Unknown]
